FAERS Safety Report 5299183-3 (Version None)
Quarter: 2007Q2

REPORT INFORMATION
  Report Type: 
  Country: None (occurrence: None)
  Receive Date: 20070410
  Receipt Date: 20061024
  Transmission Date: 20071010
  Serious: Yes (Hospitalization)
  Sender: FDA-Public Use
  Company Number: BDI-008765

PATIENT
  Age: 66 Year
  Sex: Female

DRUGS (2)
  1. ISOVUE-M 200 [Suspect]
     Indication: PAIN MANAGEMENT
     Dosage: 1 ML ONCE SY
     Dates: start: 20061019, end: 20061019
  2. ISOVUE-M 200 [Suspect]
     Indication: THERAPEUTIC PROCEDURE
     Dosage: 1 ML ONCE SY
     Dates: start: 20061019, end: 20061019

REACTIONS (2)
  - BACK PAIN [None]
  - TACHYCARDIA [None]
